FAERS Safety Report 6935771-3 (Version None)
Quarter: 2010Q3

REPORT INFORMATION
  Report Type: 
  Country: None (occurrence: None)
  Receive Date: 20100819
  Receipt Date: 20100819
  Transmission Date: 20110219
  Serious: Yes (Hospitalization)
  Sender: FDA-Public Use
  Company Number: None

PATIENT
  Sex: Female
  Weight: 95.9 kg

DRUGS (1)
  1. MEMANTINE HCL [Suspect]
     Dosage: 180 MG

REACTIONS (16)
  - BLOOD GLUCOSE INCREASED [None]
  - BLOOD PRESSURE INCREASED [None]
  - BRAIN OEDEMA [None]
  - CHEST DISCOMFORT [None]
  - CHRONIC OBSTRUCTIVE PULMONARY DISEASE [None]
  - CONVULSION [None]
  - ELECTROCARDIOGRAM Q WAVE ABNORMAL [None]
  - EMPHYSEMA [None]
  - HEART RATE INCREASED [None]
  - LYMPHOCYTE COUNT ABNORMAL [None]
  - METASTASES TO CENTRAL NERVOUS SYSTEM [None]
  - PAIN [None]
  - PULMONARY CONGESTION [None]
  - SINUS TACHYCARDIA [None]
  - TONIC CONVULSION [None]
  - UNRESPONSIVE TO STIMULI [None]
